FAERS Safety Report 8953561 (Version 2)
Quarter: 2013Q1

REPORT INFORMATION
  Report Type: Spontaneous
  Country: US (occurrence: US)
  Receive Date: 20121206
  Receipt Date: 20130104
  Transmission Date: 20140127
  Serious: No
  Sender: FDA-Public Use
  Company Number: US-PFIZER INC-2012303778

PATIENT
  Age: 36 Year
  Sex: Male
  Weight: 143 kg

DRUGS (3)
  1. CELEBREX [Suspect]
     Indication: ARTHRITIS
     Dosage: UNK, 1X/DAY
     Route: 048
     Dates: start: 201210, end: 201210
  2. BACLOFEN [Concomitant]
     Dosage: 10 MG
  3. DICLOFENAC [Concomitant]
     Dosage: UNK

REACTIONS (3)
  - Hypersensitivity [Recovered/Resolved]
  - Oedema peripheral [Recovered/Resolved]
  - Joint swelling [Recovered/Resolved]
